FAERS Safety Report 15255951 (Version 2)
Quarter: 2018Q3

REPORT INFORMATION
  Report Type: Report from Study
  Country: US (occurrence: US)
  Receive Date: 20180808
  Receipt Date: 20180823
  Transmission Date: 20181010
  Serious: Yes (Other)
  Sender: FDA-Public Use
  Company Number: US-PFIZER INC-2018311889

PATIENT
  Age: 3 Year

DRUGS (10)
  1. VINCRISTINE SULFATE. [Suspect]
     Active Substance: VINCRISTINE SULFATE
     Indication: CHEMOTHERAPY
     Dosage: FIRST TWO CYCLES WITH MG/KG DOSING UNEVENTFULLY, CYCLIC
  2. VINCRISTINE SULFATE. [Suspect]
     Active Substance: VINCRISTINE SULFATE
     Dosage: CYCLE #3 WITH MG/M2 DOSING, CYCLIC
  3. METHOTREXATE SODIUM. [Suspect]
     Active Substance: METHOTREXATE SODIUM
     Dosage: CYCLE #3 WITH MG/M2 DOSING (HIGH?DOSE), CYCLIC
  4. CYCLOPHOSPHAMIDE. [Suspect]
     Active Substance: CYCLOPHOSPHAMIDE
     Indication: CHEMOTHERAPY
     Dosage: FIRST TWO CYCLES WITH MG/KG DOSING UNEVENTFULLY, CYCLIC
  5. ETOPOSIDE. [Suspect]
     Active Substance: ETOPOSIDE
     Indication: CHEMOTHERAPY
     Dosage: FIRST TWO CYCLES WITH MG/KG DOSING UNEVENTFULLY, CYCLIC
  6. ETOPOSIDE. [Suspect]
     Active Substance: ETOPOSIDE
     Dosage: CYCLE #3 WITH MG/M2 DOSING, CYCLIC
  7. CISPLATIN. [Suspect]
     Active Substance: CISPLATIN
     Dosage: CYCLE #3 WITH MG/M2 DOSING, CYCLIC
  8. METHOTREXATE SODIUM. [Suspect]
     Active Substance: METHOTREXATE SODIUM
     Indication: CHEMOTHERAPY
     Dosage: FIRST TWO CYCLES WITH MG/KG DOSING UNEVENTFULLY (HIGH?DOSE), CYCLIC
  9. CYCLOPHOSPHAMIDE. [Suspect]
     Active Substance: CYCLOPHOSPHAMIDE
     Dosage: CYCLE #3 WITH MG/M2 DOSING, CYCLIC
  10. CISPLATIN. [Suspect]
     Active Substance: CISPLATIN
     Indication: CHEMOTHERAPY
     Dosage: FIRST TWO CYCLES WITH MG/KG DOSING UNEVENTFULLY, CYCLIC

REACTIONS (1)
  - Venoocclusive liver disease [Unknown]
